FAERS Safety Report 18997368 (Version 2)
Quarter: 2021Q2

REPORT INFORMATION
  Report Type: Spontaneous
  Country: AU (occurrence: AU)
  Receive Date: 20210311
  Receipt Date: 20210503
  Transmission Date: 20210717
  Serious: Yes (Death, Other)
  Sender: FDA-Public Use
  Company Number: AU-AMGEN-AUSSP2021034846

PATIENT

DRUGS (3)
  1. CALCIUM CARBONATE. [Concomitant]
     Active Substance: CALCIUM CARBONATE
     Dosage: 600 MILLIGRAM, QD
     Route: 048
  2. VITAMIN D [COLECALCIFEROL] [Concomitant]
     Active Substance: CHOLECALCIFEROL
     Dosage: 1000 INTERNATIONAL UNIT, QD
  3. PROLIA [Suspect]
     Active Substance: DENOSUMAB
     Indication: PRODUCT USED FOR UNKNOWN INDICATION
     Dosage: UNK
     Route: 065

REACTIONS (15)
  - Ulcerative keratitis [Unknown]
  - Injection site reaction [Unknown]
  - Abdominal discomfort [Unknown]
  - Conjunctivitis [Unknown]
  - Constipation [Unknown]
  - Lung cancer metastatic [Fatal]
  - Vomiting [Unknown]
  - Death [Fatal]
  - Arthralgia [Unknown]
  - Osteonecrosis of jaw [Unknown]
  - Lymphadenopathy [Unknown]
  - Nausea [Unknown]
  - Paraesthesia [Unknown]
  - Myalgia [Unknown]
  - Pain in jaw [Unknown]
